FAERS Safety Report 8512171 (Version 2)
Quarter: 2016Q4

REPORT INFORMATION
  Report Type: Spontaneous
  Country: US (occurrence: US)
  Receive Date: 20120413
  Receipt Date: 20161212
  Transmission Date: 20170207
  Serious: No
  Sender: FDA-Public Use
  Company Number: US-ASTRAZENECA-2011SE24362

PATIENT
  Sex: Female

DRUGS (5)
  1. PRILOSEC OTC [Suspect]
     Active Substance: OMEPRAZOLE MAGNESIUM
     Route: 048
  2. NEXIUM 24HR [Suspect]
     Active Substance: ESOMEPRAZOLE MAGNESIUM
     Indication: GASTROOESOPHAGEAL REFLUX DISEASE
     Route: 048
  3. PRILOSEC [Suspect]
     Active Substance: OMEPRAZOLE MAGNESIUM
     Route: 048
  4. NEXIUM [Suspect]
     Active Substance: ESOMEPRAZOLE MAGNESIUM
     Route: 048
  5. NEXIUM [Suspect]
     Active Substance: ESOMEPRAZOLE MAGNESIUM
     Dosage: GENERIC
     Route: 048

REACTIONS (12)
  - Dyspepsia [Unknown]
  - Cough [Unknown]
  - Drug dose omission [Unknown]
  - Abdominal discomfort [Unknown]
  - Irritable bowel syndrome [Unknown]
  - Gastrooesophageal reflux disease [Unknown]
  - Hiatus hernia [Unknown]
  - Off label use [Unknown]
  - Dysphagia [Unknown]
  - Product use issue [Unknown]
  - Haemorrhoids [Unknown]
  - Intentional product misuse [Unknown]
